FAERS Safety Report 13277372 (Version 1)
Quarter: 2017Q1

REPORT INFORMATION
  Report Type: Spontaneous
  Country: US (occurrence: US)
  Receive Date: 20170228
  Receipt Date: 20170228
  Transmission Date: 20170428
  Serious: Yes (Hospitalization, Other)
  Sender: FDA-Public Use
  Company Number: US-TEVA-743178USA

PATIENT
  Age: 76 Year
  Sex: Male

DRUGS (3)
  1. PEMBROLIZUMAB. [Suspect]
     Active Substance: PEMBROLIZUMAB
     Indication: LUNG ADENOCARCINOMA
     Dosage: ADMINISTERED ON DAY ONE
     Route: 065
     Dates: start: 2015
  2. CARBOPLATIN. [Suspect]
     Active Substance: CARBOPLATIN
     Indication: LUNG ADENOCARCINOMA
     Dosage: ADMINISTERED ON DAY ONE
     Route: 065
     Dates: start: 2015
  3. NAB-PACLITAXEL [Suspect]
     Active Substance: PACLITAXEL
     Indication: LUNG ADENOCARCINOMA
     Dosage: ADMINISTERED ON DAY ONE; ALSO ON DAYS 8 AND 15
     Route: 065
     Dates: start: 2015

REACTIONS (3)
  - Thrombocytopenia [Unknown]
  - Type 1 diabetes mellitus [Recovered/Resolved]
  - Neutropenia [Unknown]

NARRATIVE: CASE EVENT DATE: 2015
